FAERS Safety Report 7132464-7 (Version None)
Quarter: 2010Q4

REPORT INFORMATION
  Report Type: 
  Country: None (occurrence: None)
  Receive Date: 20101202
  Receipt Date: 20060907
  Transmission Date: 20110411
  Serious: No
  Sender: FDA-Public Use
  Company Number: AU-ROCHE-741838

PATIENT
  Sex: Female

DRUGS (1)
  1. ISOTRETINOIN [Suspect]
     Route: 065

REACTIONS (2)
  - ABORTION INDUCED [None]
  - NO ADVERSE EVENT [None]
